FAERS Safety Report 7337895-8 (Version None)
Quarter: 2011Q1

REPORT INFORMATION
  Report Type: 
  Country: None (occurrence: None)
  Receive Date: 20110308
  Receipt Date: 20110225
  Transmission Date: 20110831
  Serious: Yes (Other)
  Sender: FDA-Public Use
  Company Number: BR-ROCHE-762558

PATIENT
  Sex: Female
  Weight: 75 kg

DRUGS (13)
  1. TOCILIZUMAB [Suspect]
     Indication: RHEUMATOID ARTHRITIS
     Dosage: INFUSION
     Route: 042
     Dates: start: 20110111, end: 20110211
  2. METFORMIN [Concomitant]
  3. LOSARTAN POTASSIUM [Concomitant]
  4. FELDENE [Concomitant]
  5. FOLIC ACID [Concomitant]
  6. AMLODIPINE BESYLATE [Concomitant]
  7. DIPROSPAN [Concomitant]
  8. DEFLAZACORT [Concomitant]
  9. METHOTREXATE [Concomitant]
  10. OMEPRAZOLE [Concomitant]
  11. LEXOTAN [Concomitant]
  12. OSCAL D [Concomitant]
  13. CRESTOR [Concomitant]

REACTIONS (5)
  - ARTHRITIS [None]
  - ABASIA [None]
  - DRUG INEFFECTIVE [None]
  - OEDEMA PERIPHERAL [None]
  - PAIN [None]
